FAERS Safety Report 20579743 (Version 3)
Quarter: 2022Q2

REPORT INFORMATION
  Report Type: Spontaneous
  Country: US (occurrence: US)
  Receive Date: 20220310
  Receipt Date: 20220518
  Transmission Date: 20220721
  Serious: Yes (Other)
  Sender: FDA-Public Use
  Company Number: US-PFIZER INC-202200383422

PATIENT
  Age: 73 Year
  Sex: Female

DRUGS (2)
  1. IBRANCE [Suspect]
     Active Substance: PALBOCICLIB
     Dosage: UNK
  2. IBRANCE [Suspect]
     Active Substance: PALBOCICLIB
     Dosage: 100 MG, 1 TABLET, ONCE DAILY WITH OR WITHOUT FOOD FOR 19 DAYS, 9 DAYS OFF, REPEATED EVERY 28 DAYS
     Route: 048
     Dates: start: 202101, end: 20220429

REACTIONS (3)
  - Neutropenia [Unknown]
  - Off label use [Unknown]
  - Product dose omission issue [Unknown]
